FAERS Safety Report 15326227 (Version 3)
Quarter: 2018Q4

REPORT INFORMATION
  Report Type: Spontaneous
  Country: JP (occurrence: JP)
  Receive Date: 20180828
  Receipt Date: 20181004
  Transmission Date: 20190204
  Serious: Yes (Hospitalization)
  Sender: FDA-Public Use
  Company Number: JP-PFIZER INC-2018340148

PATIENT
  Age: 83 Year
  Sex: Male

DRUGS (2)
  1. SUTENT [Suspect]
     Active Substance: SUNITINIB MALATE
     Indication: RENAL CANCER
     Dosage: 75 MG (3 TABLETS), 1X/DAY
     Route: 048
     Dates: start: 20180717, end: 20180730
  2. SUTENT [Suspect]
     Active Substance: SUNITINIB MALATE
     Dosage: 75 MG (3 TABLETS), 1X/DAY
     Route: 048
     Dates: start: 20180807, end: 20180808

REACTIONS (2)
  - Thrombocytopenia [Recovered/Resolved]
  - Neutropenia [Recovered/Resolved]

NARRATIVE: CASE EVENT DATE: 20180806
